FAERS Safety Report 15012733 (Version 2)
Quarter: 2018Q2

REPORT INFORMATION
  Report Type: Spontaneous
  Country: DE (occurrence: DE)
  Receive Date: 20180614
  Receipt Date: 20180620
  Transmission Date: 20180711
  Serious: Yes (Other)
  Sender: FDA-Public Use
  Company Number: DE-TEVA-2018-DE-907508

PATIENT
  Age: 54 Year
  Sex: Male
  Weight: 95 kg

DRUGS (1)
  1. PROVIGIL [Suspect]
     Active Substance: MODAFINIL
     Indication: SOMNOLENCE
     Dosage: 200 MILLIGRAM DAILY;
     Dates: start: 20170726, end: 20170726

REACTIONS (4)
  - Cerebrovascular accident [Recovered/Resolved]
  - Hypertensive crisis [Recovered/Resolved]
  - Tinnitus [Recovered/Resolved]
  - Adverse event [Unknown]

NARRATIVE: CASE EVENT DATE: 20170726
